FAERS Safety Report 16715678 (Version 2)
Quarter: 2019Q4

REPORT INFORMATION
  Report Type: Report from Study
  Country: US (occurrence: US)
  Receive Date: 20190819
  Receipt Date: 20191004
  Transmission Date: 20200122
  Serious: Yes (Other)
  Sender: FDA-Public Use
  Company Number: US-EMD SERONO-9102200

PATIENT
  Age: 59 Year
  Sex: Male
  Weight: 68 kg

DRUGS (1)
  1. SEROSTIM [Suspect]
     Active Substance: SOMATROPIN
     Indication: CACHEXIA
     Dosage: 7 VIAL PACK?DEVICE: COOL.CLICK I
     Route: 058
     Dates: start: 2008

REACTIONS (7)
  - Liquid product physical issue [Unknown]
  - Product storage error [Unknown]
  - Haemorrhagic diathesis [Recovered/Resolved]
  - Stress [Unknown]
  - Injection site pain [Unknown]
  - Product formulation issue [Unknown]
  - Injection site haemorrhage [Unknown]

NARRATIVE: CASE EVENT DATE: 201909
